FAERS Safety Report 17306386 (Version 2)
Quarter: 2020Q2

REPORT INFORMATION
  Report Type: Spontaneous
  Country: SE (occurrence: SE)
  Receive Date: 20200123
  Receipt Date: 20200402
  Transmission Date: 20200713
  Serious: Yes (Hospitalization)
  Sender: FDA-Public Use
  Company Number: SE-ELI_LILLY_AND_COMPANY-SE202001009116

PATIENT
  Age: 49 Year
  Sex: Female

DRUGS (2)
  1. PREGABALINE [Suspect]
     Active Substance: PREGABALIN
     Indication: BACK PAIN
     Dosage: 300 MG, DAILY
     Route: 065
  2. ATOMOXETINE HYDROCHLORIDE. [Suspect]
     Active Substance: ATOMOXETINE HYDROCHLORIDE
     Indication: ATTENTION DEFICIT HYPERACTIVITY DISORDER
     Dosage: 60 MG AND 18 MG DAILY
     Route: 048

REACTIONS (3)
  - Stress cardiomyopathy [Recovered/Resolved]
  - Hypotension [Unknown]
  - Tachycardia [Unknown]
